FAERS Safety Report 16302419 (Version 1)
Quarter: 2019Q2

REPORT INFORMATION
  Report Type: Report from Study
  Country: None (occurrence: US)
  Receive Date: 20190513
  Receipt Date: 20190513
  Transmission Date: 20190711
  Serious: Yes (Other)
  Sender: FDA-Public Use
  Company Number: US-ABBVIE-19K-163-2698609-00

PATIENT
  Age: 17 Year
  Sex: Female

DRUGS (1)
  1. HUMIRA [Suspect]
     Active Substance: ADALIMUMAB
     Indication: CROHN^S DISEASE
     Dosage: CITRATE FREE
     Route: 058

REACTIONS (8)
  - Bronchiectasis [Not Recovered/Not Resolved]
  - Injection site warmth [Recovered/Resolved]
  - Pneumothorax [Recovering/Resolving]
  - Respiratory disorder [Recovering/Resolving]
  - Injection site erythema [Recovered/Resolved]
  - Pneumonia [Recovering/Resolving]
  - Injection site swelling [Recovered/Resolved]
  - Injection site reaction [Recovering/Resolving]

NARRATIVE: CASE EVENT DATE: 2019
